FAERS Safety Report 12213473 (Version 1)
Quarter: 2016Q1

REPORT INFORMATION
  Report Type: Spontaneous
  Country: US (occurrence: None)
  Receive Date: 20160325
  Receipt Date: 20160325
  Transmission Date: 20160526
  Serious: No
  Sender: FDA-Public Use
  Company Number: None

PATIENT
  Age: 61 Year
  Sex: Male

DRUGS (1)
  1. LUPRON DEPOT [Suspect]
     Active Substance: LEUPROLIDE ACETATE
     Dosage: 22.5MG EVERY 3 MONTHS INTRAMUSCULARLY
     Route: 030
     Dates: start: 20160126

REACTIONS (2)
  - Rash pruritic [None]
  - Rash macular [None]

NARRATIVE: CASE EVENT DATE: 201603
